FAERS Safety Report 17581428 (Version 4)
Quarter: 2023Q2

REPORT INFORMATION
  Report Type: Spontaneous
  Country: US (occurrence: US)
  Receive Date: 20200325
  Receipt Date: 20230403
  Transmission Date: 20230722
  Serious: Yes (Other)
  Sender: FDA-Public Use
  Company Number: US-GILEAD-2020-0456177

PATIENT
  Age: 41 Year
  Sex: Female
  Weight: 97.959 kg

DRUGS (48)
  1. TRUVADA [Suspect]
     Active Substance: EMTRICITABINE\TENOFOVIR DISOPROXIL FUMARATE
     Indication: HIV infection
     Dosage: UNK
     Route: 048
     Dates: start: 2009, end: 201708
  2. GENVOYA [Concomitant]
     Active Substance: COBICISTAT\ELVITEGRAVIR\EMTRICITABINE\TENOFOVIR ALAFENAMIDE FUMARATE
  3. NORVIR [Concomitant]
     Active Substance: RITONAVIR
  4. REYATAZ [Concomitant]
     Active Substance: ATAZANAVIR SULFATE
  5. ACETAMINOPHEN [Concomitant]
     Active Substance: ACETAMINOPHEN
  6. ACYCLOVIR [Concomitant]
     Active Substance: ACYCLOVIR
  7. AMOXICILLIN [Concomitant]
     Active Substance: AMOXICILLIN
  8. ATENOLOL [Concomitant]
     Active Substance: ATENOLOL
  9. ATROPINE [Concomitant]
     Active Substance: ATROPINE
  10. AZITHROMYCIN [Concomitant]
     Active Substance: AZITHROMYCIN
  11. BUDEPRION [Concomitant]
     Active Substance: BUPROPION HYDROCHLORIDE
  12. CALCIUM CARBONATE\CHOLECALCIFEROL [Concomitant]
     Active Substance: CALCIUM CARBONATE\CHOLECALCIFEROL
  13. CETIRIZINE [Concomitant]
     Active Substance: CETIRIZINE HYDROCHLORIDE
  14. CIPROFLOXACIN [Concomitant]
     Active Substance: CIPROFLOXACIN
  15. CLARITHROMYCIN [Concomitant]
     Active Substance: CLARITHROMYCIN
  16. CLINDAMYCIN [Concomitant]
     Active Substance: CLINDAMYCIN
  17. CLOTRIMAZOLE [Concomitant]
     Active Substance: CLOTRIMAZOLE
  18. DOXYCYCLINE [Concomitant]
     Active Substance: DOXYCYCLINE
  19. ESTRADIOL [Concomitant]
     Active Substance: ESTRADIOL
  20. FAMOTIDINE [Concomitant]
     Active Substance: FAMOTIDINE
  21. FLUCONAZOLE [Concomitant]
     Active Substance: FLUCONAZOLE
  22. HYDROCODONE [Concomitant]
     Active Substance: HYDROCODONE
  23. HYDROMORPHONE [Concomitant]
     Active Substance: HYDROMORPHONE
  24. HYOSCYAMINE [Concomitant]
     Active Substance: HYOSCYAMINE
  25. IBUPROFEN [Concomitant]
     Active Substance: IBUPROFEN
  26. LEVOFLOXACIN [Concomitant]
     Active Substance: LEVOFLOXACIN
  27. LEVOTHYROXINE [Concomitant]
     Active Substance: LEVOTHYROXINE
  28. LOPERAMIDE [Concomitant]
     Active Substance: LOPERAMIDE
  29. MECLIZINE HYDROCHLORIDE [Concomitant]
     Active Substance: MECLIZINE HYDROCHLORIDE
  30. MELOXICAM [Concomitant]
     Active Substance: MELOXICAM
  31. METHIMAZOLE [Concomitant]
     Active Substance: METHIMAZOLE
  32. METHYLPREDNISOLONE [Concomitant]
     Active Substance: METHYLPREDNISOLONE
  33. METRONIDAZOLE [Concomitant]
     Active Substance: METRONIDAZOLE
  34. NAPROXEN [Concomitant]
     Active Substance: NAPROXEN
  35. NITROFURANTOIN [Concomitant]
     Active Substance: NITROFURANTOIN
  36. OMEPRAZOLE [Concomitant]
     Active Substance: OMEPRAZOLE
  37. ONDANSETRON [Concomitant]
     Active Substance: ONDANSETRON
  38. OXYBUTYNIN [Concomitant]
     Active Substance: OXYBUTYNIN
  39. PHENAZOPYRIDINE [Concomitant]
     Active Substance: PHENAZOPYRIDINE
  40. PREDNISONE [Concomitant]
     Active Substance: PREDNISONE
  41. PROPRANOLOL [Concomitant]
     Active Substance: PROPRANOLOL HYDROCHLORIDE
  42. PYLERA [Concomitant]
     Active Substance: BISMUTH SUBCITRATE POTASSIUM\METRONIDAZOLE\TETRACYCLINE HYDROCHLORIDE
  43. RANITIDINE [Concomitant]
     Active Substance: RANITIDINE
  44. VALACYCLOVIR [Concomitant]
     Active Substance: VALACYCLOVIR HYDROCHLORIDE
  45. VENLAFAXINE HYDROCHLORIDE [Concomitant]
     Active Substance: VENLAFAXINE HYDROCHLORIDE
  46. SERTRALINE [Concomitant]
     Active Substance: SERTRALINE HYDROCHLORIDE
  47. TRAMADOL [Concomitant]
     Active Substance: TRAMADOL
  48. LORATADINE [Concomitant]
     Active Substance: LORATADINE

REACTIONS (10)
  - Fracture [Not Recovered/Not Resolved]
  - Osteopenia [Not Recovered/Not Resolved]
  - Bone density decreased [Unknown]
  - Emotional distress [Not Recovered/Not Resolved]
  - Anxiety [Not Recovered/Not Resolved]
  - Anhedonia [Not Recovered/Not Resolved]
  - Economic problem [Not Recovered/Not Resolved]
  - Pain [Not Recovered/Not Resolved]
  - Depression [Not Recovered/Not Resolved]
  - Ankle fracture [Unknown]

NARRATIVE: CASE EVENT DATE: 20100101
